FAERS Safety Report 7799870-9 (Version None)
Quarter: 2011Q4

REPORT INFORMATION
  Report Type: 
  Country: None (occurrence: None)
  Receive Date: 20111004
  Receipt Date: 20110922
  Transmission Date: 20120403
  Serious: Yes (Hospitalization, Disabling, Other)
  Sender: FDA-Public Use
  Company Number: 2011SP017497

PATIENT
  Age: 51 Year
  Sex: Female

DRUGS (8)
  1. COMPAZINE [Concomitant]
  2. INTRON A [Suspect]
     Indication: MALIGNANT MELANOMA STAGE III
     Dosage: IV; IV
     Route: 042
     Dates: start: 20110328, end: 20110401
  3. INTRON A [Suspect]
     Indication: MALIGNANT MELANOMA STAGE III
     Dosage: IV; IV
     Route: 042
     Dates: start: 20110321, end: 20110325
  4. HYDROCHLOROTHIAZIDE [Concomitant]
  5. ASPIRIN [Concomitant]
  6. DECADRON [Suspect]
  7. PERCOCET [Concomitant]
  8. NORVASC [Concomitant]

REACTIONS (20)
  - BLOOD TRIGLYCERIDES DECREASED [None]
  - GLOMERULONEPHRITIS [None]
  - RENAL FAILURE ACUTE [None]
  - CHILLS [None]
  - SLEEP APNOEA SYNDROME [None]
  - PANCREATITIS NECROTISING [None]
  - GASTROOESOPHAGEAL REFLUX DISEASE [None]
  - CHEST PAIN [None]
  - HYPONATRAEMIA [None]
  - OBESITY [None]
  - HAEMODIALYSIS [None]
  - HYPERTENSION [None]
  - SKIN NEOPLASM EXCISION [None]
  - INFLUENZA LIKE ILLNESS [None]
  - PANCREATITIS ACUTE [None]
  - HYPERHIDROSIS [None]
  - PALLOR [None]
  - REFUSAL OF TREATMENT BY PATIENT [None]
  - TYPE 2 DIABETES MELLITUS [None]
  - HEART RATE DECREASED [None]
